FAERS Safety Report 5915334-9 (Version None)
Quarter: 2008Q4

REPORT INFORMATION
  Report Type: 
  Country: None (occurrence: None)
  Receive Date: 20081010
  Receipt Date: 20081001
  Transmission Date: 20090506
  Serious: Yes (Other)
  Sender: FDA-Public Use
  Company Number: CO-SANOFI-SYNTHELABO-A01200812113

PATIENT
  Sex: Female

DRUGS (7)
  1. TIROFIBAN [Concomitant]
     Indication: ANTIPLATELET THERAPY
     Route: 042
     Dates: start: 20080917, end: 20080919
  2. ISOSORBIDE DINITRATE [Concomitant]
     Indication: CORONARY ARTERY DISEASE
     Route: 048
     Dates: start: 20080917, end: 20080917
  3. ENOXAPARIN SODIUM [Concomitant]
     Indication: THROMBOSIS PROPHYLAXIS
     Route: 058
     Dates: start: 20080917, end: 20080923
  4. ASPIRIN [Concomitant]
     Indication: THROMBOSIS PROPHYLAXIS
     Route: 048
     Dates: start: 20080917, end: 20080923
  5. PLAVIX [Suspect]
     Indication: PROPHYLAXIS
     Dosage: 600 MG ONCE FOLLOWED BY 300 MG ONCE, FOLLOWED BY 75 MG DAILY
     Route: 048
     Dates: start: 20080917
  6. PLAVIX [Suspect]
     Indication: STENT PLACEMENT
     Dosage: 600 MG ONCE FOLLOWED BY 300 MG ONCE, FOLLOWED BY 75 MG DAILY
     Route: 048
     Dates: start: 20080917
  7. PLAVIX [Suspect]
     Indication: CORONARY ARTERY DISEASE
     Dosage: 600 MG ONCE FOLLOWED BY 300 MG ONCE, FOLLOWED BY 75 MG DAILY
     Route: 048
     Dates: start: 20080917

REACTIONS (3)
  - ACUTE MYOCARDIAL INFARCTION [None]
  - IN-STENT CORONARY ARTERY RESTENOSIS [None]
  - OVERDOSE [None]
